FAERS Safety Report 9409436 (Version 1)
Quarter: 2013Q3

REPORT INFORMATION
  Report Type: Spontaneous
  Country: US (occurrence: US)
  Receive Date: 20130719
  Receipt Date: 20130719
  Transmission Date: 20140515
  Serious: No
  Sender: FDA-Public Use
  Company Number: US-MYLANLABS-2013S1009522

PATIENT
  Age: 67 Year
  Sex: Male

DRUGS (7)
  1. VALSARTAN AND HYDROCHLOROTHIAZIDE TABLETS [Suspect]
     Indication: HYPERTENSION
     Dates: start: 201301, end: 201302
  2. CLONIDINE [Concomitant]
  3. BYSTOLIC [Concomitant]
  4. AMLODIPINE [Concomitant]
  5. METFORMIN [Concomitant]
  6. B COMPLEX /00212701/ [Concomitant]
  7. Q10 [Concomitant]

REACTIONS (1)
  - Blood pressure increased [Recovered/Resolved]
